FAERS Safety Report 9110684 (Version 1)
Quarter: 2013Q1

REPORT INFORMATION
  Report Type: Spontaneous
  Country: US (occurrence: US)
  Receive Date: 20130219
  Receipt Date: 20130219
  Transmission Date: 20140127
  Serious: No
  Sender: FDA-Public Use
  Company Number: US-BRISTOL-MYERS SQUIBB COMPANY-17075326

PATIENT
  Age: 52 Year
  Sex: Female
  Weight: 60.77 kg

DRUGS (4)
  1. ABATACEPT SUBQ INJECTION 125MG/ML [Suspect]
     Indication: RHEUMATOID ARTHRITIS
     Dosage: 1DF=125MG/ML,FORMULATION-ORENCIA 125MG/ML PFS (4 PACK)
     Route: 058
     Dates: start: 2008, end: 201212
  2. DICLOFENAC SODIUM [Concomitant]
     Dosage: DICLOFENAC TAB 50MG DR
  3. NUVARING [Concomitant]
     Dosage: NUVARING MIS
  4. VITAMIN D [Concomitant]
     Dosage: FORMULATION-VIT D HIGH CAP POTENCY

REACTIONS (2)
  - Injection site reaction [Unknown]
  - Drug ineffective [Unknown]
